FAERS Safety Report 8461304-9 (Version None)
Quarter: 2012Q2

REPORT INFORMATION
  Report Type: 
  Country: None (occurrence: None)
  Receive Date: 20120323
  Receipt Date: 20110912
  Transmission Date: 20120825
  Serious: Yes (Other)
  Sender: FDA-Public Use
  Company Number: 163-21880-11091447

PATIENT
  Age: 67 Year
  Sex: Female
  Weight: 68.0396 kg

DRUGS (11)
  1. LOPRESSOR [Concomitant]
  2. BLOOD(BLOOD AND RELATED PRODUCTS) [Concomitant]
  3. PROCRIT [Concomitant]
  4. GLUCOPHAGE [Concomitant]
  5. ZOCOR [Concomitant]
  6. INFED [Concomitant]
  7. PRILOSEC [Concomitant]
  8. LISINOPRIL AND HYDROCHLOROTHIAZIDE [Concomitant]
  9. REVLIMID [Suspect]
     Indication: MYELODYSPLASTIC SYNDROME
     Dosage: 10 MG, 1 IN 1 D, PO
     Route: 048
     Dates: start: 20110824, end: 20110901
  10. LANTUS [Concomitant]
  11. XANAX [Concomitant]

REACTIONS (2)
  - PRURITUS [None]
  - RASH [None]
